FAERS Safety Report 11818810 (Version 1)
Quarter: 2015Q4

REPORT INFORMATION
  Report Type: Spontaneous
  Country: US (occurrence: None)
  Receive Date: 20151209
  Receipt Date: 20151209
  Transmission Date: 20160305
  Serious: Yes (Hospitalization)
  Sender: FDA-Public Use
  Company Number: None

PATIENT
  Age: 84 Year
  Sex: Female
  Weight: 77.5 kg

DRUGS (8)
  1. LANTUS [Concomitant]
     Active Substance: INSULIN GLARGINE
  2. MACRODANTIN [Concomitant]
     Active Substance: NITROFURANTOIN
  3. ZOCOR [Concomitant]
     Active Substance: SIMVASTATIN
  4. WARFARIN [Suspect]
     Active Substance: WARFARIN
     Indication: ATRIAL FIBRILLATION
     Dosage: MONDAYS?CHRONIC
     Route: 048
  5. WARFARIN [Suspect]
     Active Substance: WARFARIN
     Indication: ATRIAL FIBRILLATION
     Dosage: TWTHFSS?CHRONIC
     Route: 048
  6. DOXCYCYLINE [Concomitant]
  7. COREG [Concomitant]
     Active Substance: CARVEDILOL
  8. LEVOTHYROXINE. [Concomitant]
     Active Substance: LEVOTHYROXINE

REACTIONS (5)
  - International normalised ratio increased [None]
  - Hypophagia [None]
  - Upper gastrointestinal haemorrhage [None]
  - Gastric ulcer [None]
  - Haemorrhagic anaemia [None]

NARRATIVE: CASE EVENT DATE: 20150521
